FAERS Safety Report 20939741 (Version 1)
Quarter: 2022Q2

REPORT INFORMATION
  Report Type: Spontaneous
  Country: US (occurrence: None)
  Receive Date: 20220609
  Receipt Date: 20220609
  Transmission Date: 20220721
  Serious: No
  Sender: FDA-Public Use
  Company Number: None

PATIENT
  Sex: Female

DRUGS (1)
  1. OTEZLA [Suspect]
     Active Substance: APREMILAST
     Indication: Psoriasis
     Dosage: 30MG DAILY ORAL?
     Route: 048
     Dates: start: 20220517

REACTIONS (5)
  - Psoriasis [None]
  - Scratch [None]
  - Haemorrhage [None]
  - Therapeutic product effect decreased [None]
  - Drug ineffective [None]
